FAERS Safety Report 6197224-2 (Version None)
Quarter: 2009Q2

REPORT INFORMATION
  Report Type: 
  Country: None (occurrence: None)
  Receive Date: 20090521
  Receipt Date: 20070326
  Transmission Date: 20091009
  Serious: No
  Sender: FDA-Public Use
  Company Number: US-ASTRAZENECA-2006UW11319

PATIENT
  Age: 14523 Day
  Sex: Female
  Weight: 102.1 kg

DRUGS (13)
  1. SEROQUEL [Suspect]
     Indication: BIPOLAR DISORDER
     Dosage: 25-200 MG AT NIGHT IN STRENGTH RANGE OF 25 MG -200 MG
     Route: 048
     Dates: start: 20050719
  2. SEROQUEL [Suspect]
     Indication: ANXIETY
     Dosage: 25-200 MG AT NIGHT IN STRENGTH RANGE OF 25 MG -200 MG
     Route: 048
     Dates: start: 20050719
  3. SEROQUEL [Suspect]
     Indication: INSOMNIA
     Dosage: 25-200 MG AT NIGHT IN STRENGTH RANGE OF 25 MG -200 MG
     Route: 048
     Dates: start: 20050719
  4. HYZAAR [Concomitant]
     Indication: HYPERTENSION
     Dosage: 12.5MG-50MG (HYDROCHLROTHIAZIDE) AND 50MG-100MG (LOSARTAN POTASSIUM) WAS DISPENSED
     Route: 048
  5. DIOVAN HCT [Concomitant]
     Indication: HYPERTENSION
     Dosage: 160 MG (VALSARTAN) AND 12.5 MG (HYDROCHLOROTHIAIDE) DAILY
     Route: 048
     Dates: start: 20061024
  6. NORVASC [Concomitant]
     Indication: HYPERTENSION
     Route: 048
     Dates: start: 20060712
  7. ULTRACET [Concomitant]
     Indication: DYSMENORRHOEA
     Route: 065
  8. GLIPIZIDE [Concomitant]
     Route: 048
     Dates: start: 20060712
  9. AMOXICILLIN [Concomitant]
     Route: 048
  10. METFORMIN HCL [Concomitant]
     Route: 048
  11. TOPROL-XL [Concomitant]
     Indication: HYPERTENSION
     Route: 048
     Dates: start: 20061024
  12. SKELAXIN [Concomitant]
     Indication: BACK PAIN
     Route: 048
  13. CLARITIN [Concomitant]
     Route: 048

REACTIONS (9)
  - ALOPECIA [None]
  - BIPOLAR DISORDER [None]
  - DEPRESSION [None]
  - ENERGY INCREASED [None]
  - HUNGER [None]
  - HYPERGLYCAEMIA [None]
  - INSOMNIA [None]
  - TYPE 2 DIABETES MELLITUS [None]
  - WEIGHT INCREASED [None]
